FAERS Safety Report 17585072 (Version 8)
Quarter: 2023Q2

REPORT INFORMATION
  Report Type: Report from Study
  Country: CA (occurrence: CA)
  Receive Date: 20200326
  Receipt Date: 20230403
  Transmission Date: 20230722
  Serious: Yes (Hospitalization, Other)
  Sender: FDA-Public Use
  Company Number: CA-HLS-202000232

PATIENT
  Age: 22 Year
  Sex: Male

DRUGS (6)
  1. SERTRALINE [Concomitant]
     Active Substance: SERTRALINE HYDROCHLORIDE
     Indication: Product used for unknown indication
     Dosage: 150 MG DAILY
     Route: 048
     Dates: start: 20191101
  2. ESTRACE [Concomitant]
     Active Substance: ESTRADIOL
     Indication: Product used for unknown indication
     Dosage: 2 MG BY MOUTH TWICE DAILY
     Route: 048
     Dates: start: 20180418
  3. CLOZARIL [Suspect]
     Active Substance: CLOZAPINE
     Indication: Schizophreniform disorder
     Route: 065
  4. CLOZARIL [Suspect]
     Active Substance: CLOZAPINE
     Indication: Schizophreniform disorder
     Dosage: 21-NOV-2019 TO 9-JAN-2020: 250 MG QHS THEN,?10-JAN-2020 TO 29-JAN-2020: 300 MG QHS THEN,?30-JAN-2020
     Route: 048
  5. CLOZARIL [Suspect]
     Active Substance: CLOZAPINE
     Indication: Schizophreniform disorder
     Dosage: TITRATED UP SLOWLY TO 350MG OD. LAST INCREASE WAS IN FEB-2020. DOSE WAS DECREASED TO 300MG OD ON 20-
     Route: 048
     Dates: start: 20191007, end: 20200330
  6. ZOPICLONE [Concomitant]
     Active Substance: ZOPICLONE
     Indication: Product used for unknown indication
     Dosage: 7.5 MG BY MOUTH EVERY BEDTIME WHEN NEEDED
     Route: 048

REACTIONS (16)
  - Red blood cell abnormality [Recovered/Resolved]
  - Red blood cell abnormality [Recovered/Resolved]
  - Febrile neutropenia [Recovered/Resolved]
  - Haematocrit abnormal [Recovered/Resolved]
  - Haematocrit abnormal [Recovered/Resolved]
  - Haemoglobin abnormal [Unknown]
  - Haemoglobin abnormal [Recovered/Resolved]
  - Haemoglobin abnormal [Recovered/Resolved]
  - Immunodeficiency [Unknown]
  - White blood cell disorder [Recovered/Resolved]
  - Leukopenia [Recovered/Resolved]
  - Lymphocyte count [Recovered/Resolved]
  - Mean cell haemoglobin concentration decreased [Recovered/Resolved]
  - Neutrophil count abnormal [Recovered/Resolved]
  - Off label use [Unknown]
  - Platelet disorder [Recovered/Resolved]

NARRATIVE: CASE EVENT DATE: 20191107
